FAERS Safety Report 6550893-7 (Version None)
Quarter: 2010Q1

REPORT INFORMATION
  Report Type: 
  Country: None (occurrence: None)
  Receive Date: 20100125
  Receipt Date: 20100111
  Transmission Date: 20100710
  Serious: Yes (Hospitalization, Other)
  Sender: FDA-Public Use
  Company Number: US-MYLANLABS-2010S1000415

PATIENT
  Age: 60 Year
  Sex: Female

DRUGS (6)
  1. DEXTROMETHORPHAN [Suspect]
     Indication: UPPER RESPIRATORY TRACT INFECTION
     Dosage: TOOK GREATER THAN RECOMMENDED DOSES
  2. DEXTROPROPOXYPHENE [Concomitant]
  3. PROCET                             /01554201/ [Interacting]
  4. ATENOLOL [Concomitant]
  5. FUROSEMIDE [Concomitant]
  6. ESOMEPRAZOLE [Concomitant]

REACTIONS (3)
  - AGITATION [None]
  - DRUG INTERACTION [None]
  - PSYCHOTIC DISORDER [None]
